FAERS Safety Report 7936290-8 (Version None)
Quarter: 2011Q4

REPORT INFORMATION
  Report Type: 
  Country: None (occurrence: None)
  Receive Date: 20111123
  Receipt Date: 20111111
  Transmission Date: 20120403
  Serious: No
  Sender: FDA-Public Use
  Company Number: US-B.I. PHARMACEUTICALS,INC./RIDGEFIELD-2011-BP-26101BP

PATIENT

DRUGS (1)
  1. PRADAXA [Suspect]

REACTIONS (3)
  - GASTRIC DISORDER [None]
  - DIARRHOEA [None]
  - SLEEP DISORDER [None]
